FAERS Safety Report 11437948 (Version 3)
Quarter: 2015Q4

REPORT INFORMATION
  Report Type: Report from Study
  Country: US (occurrence: US)
  Receive Date: 20150831
  Receipt Date: 20151209
  Transmission Date: 20160304
  Serious: No
  Sender: FDA-Public Use
  Company Number: PHEH2015US016115

PATIENT
  Sex: Male
  Weight: 89.34 kg

DRUGS (1)
  1. GILENYA [Suspect]
     Active Substance: FINGOLIMOD HYDROCHLORIDE
     Indication: MULTIPLE SCLEROSIS
     Dosage: 0.5 MG, QD
     Route: 048
     Dates: start: 20150629

REACTIONS (7)
  - Full blood count decreased [Unknown]
  - Arthralgia [Not Recovered/Not Resolved]
  - Apathy [Unknown]
  - Fatigue [Not Recovered/Not Resolved]
  - Ligament pain [Not Recovered/Not Resolved]
  - Memory impairment [Unknown]
  - Asthenia [Not Recovered/Not Resolved]
